FAERS Safety Report 15352444 (Version 1)
Quarter: 2018Q3

REPORT INFORMATION
  Report Type: Spontaneous
  Country: US (occurrence: US)
  Receive Date: 20180829
  Receipt Date: 20180829
  Transmission Date: 20181010
  Serious: Yes (Hospitalization)
  Sender: FDA-Public Use
  Company Number: None

PATIENT
  Age: 45 Year
  Sex: Female

DRUGS (1)
  1. DAPTOMYCIN 500MG TEVA [Suspect]
     Active Substance: DAPTOMYCIN
     Indication: STAPHYLOCOCCAL INFECTION
     Route: 042
     Dates: start: 20180720, end: 20180722

REACTIONS (3)
  - Myalgia [None]
  - Drug level increased [None]
  - Drug dose omission [None]

NARRATIVE: CASE EVENT DATE: 20180722
